FAERS Safety Report 7231581-0 (Version None)
Quarter: 2011Q1

REPORT INFORMATION
  Report Type: 
  Country: None (occurrence: None)
  Receive Date: 20110118
  Receipt Date: 20110110
  Transmission Date: 20110831
  Serious: Yes (Hospitalization)
  Sender: FDA-Public Use
  Company Number: PHHO2011BR00894

PATIENT
  Sex: Female

DRUGS (3)
  1. NEORAL [Suspect]
     Indication: RENAL TRANSPLANT
     Dosage: 150 MG, QD
     Route: 048
     Dates: start: 20090428
  2. CELLCEPT [Concomitant]
     Indication: RENAL TRANSPLANT
     Dosage: 1000 MG
     Route: 048
     Dates: start: 20090424
  3. PREDNISONE [Concomitant]
     Indication: RENAL TRANSPLANT
     Dosage: 5 MG
     Route: 048
     Dates: start: 20080611

REACTIONS (12)
  - HYSTERECTOMY [None]
  - SURGERY [None]
  - VOMITING [None]
  - VAGINAL HAEMORRHAGE [None]
  - RENAL IMPAIRMENT [None]
  - THROMBOPHLEBITIS SUPERFICIAL [None]
  - UTERINE CANCER [None]
  - WOUND EVISCERATION [None]
  - NAUSEA [None]
  - DEHYDRATION [None]
  - MASS [None]
  - ANAEMIA [None]
